FAERS Safety Report 5811304-X (Version None)
Quarter: 2008Q3

REPORT INFORMATION
  Report Type: 
  Country: None (occurrence: None)
  Receive Date: 20080710
  Receipt Date: 20080706
  Transmission Date: 20090109
  Serious: Yes (Life-Threatening)
  Sender: FDA-Public Use
  Company Number: 2008-180335-NL

PATIENT
  Age: 82 Year
  Sex: Female

DRUGS (11)
  1. MIRTAZAPINE [Suspect]
     Indication: DEPRESSION
     Dosage: 15 MG ORAL
     Route: 048
  2. ACENOCOUMAROL [Suspect]
     Indication: ATRIAL FIBRILLATION
     Dosage: DF ORAL
     Route: 048
     Dates: end: 20080427
  3. ACENOCOUMAROL [Suspect]
     Indication: ATRIAL FLUTTER
     Dosage: DF ORAL
     Route: 048
     Dates: end: 20080427
  4. AUGMENTIN [Suspect]
     Indication: BRONCHOPNEUMONIA
     Dosage: 162.5 MG ORAL
     Route: 048
     Dates: start: 20080422, end: 20080428
  5. SOTALOL HYDROCHLORIDE [Concomitant]
  6. FELODIPINE [Concomitant]
  7. RANITIDINE HYDROCHLORIDE [Concomitant]
  8. BUPRENORPHINE HYDROCHLORIDE [Concomitant]
  9. ACETYLCYSTEINE [Concomitant]
  10. LASIX [Concomitant]
  11. ZOLPIDEM [Concomitant]

REACTIONS (16)
  - ACTIVATED PARTIAL THROMBOPLASTIN TIME PROLONGED [None]
  - ANAEMIA [None]
  - BARRETT'S OESOPHAGUS [None]
  - BRADYCARDIA [None]
  - BRONCHOPNEUMONIA [None]
  - CONDITION AGGRAVATED [None]
  - DRUG INTERACTION [None]
  - FALL [None]
  - GASTROINTESTINAL HAEMORRHAGE [None]
  - GASTROINTESTINAL ULCER HAEMORRHAGE [None]
  - HYPOTENSION [None]
  - HYPOTHERMIA [None]
  - INTERNATIONAL NORMALISED RATIO INCREASED [None]
  - MOBILITY DECREASED [None]
  - OSTEOPOROSIS [None]
  - PATHOLOGICAL FRACTURE [None]
